FAERS Safety Report 5649885-1 (Version None)
Quarter: 2008Q1

REPORT INFORMATION
  Report Type: 
  Country: None (occurrence: None)
  Receive Date: 20080304
  Receipt Date: 20080219
  Transmission Date: 20080703
  Serious: Yes (Other)
  Sender: FDA-Public Use
  Company Number: ZA-ELI_LILLY_AND_COMPANY-ZA200802005486

PATIENT
  Age: 11 Year
  Sex: Female
  Weight: 40 kg

DRUGS (4)
  1. STRATTERA [Suspect]
     Indication: ATTENTION DEFICIT/HYPERACTIVITY DISORDER
     Dosage: 40 MG, DAILY (1/D)
     Route: 048
     Dates: start: 20070801, end: 20080207
  2. STRATTERA [Suspect]
     Dosage: UNK, LOWER DOSE
     Route: 048
     Dates: start: 20080201
  3. TEGRETOL [Concomitant]
     Indication: EPILEPSY
     Dosage: UNK, UNKNOWN
  4. CLOBAZAM [Concomitant]
     Dosage: UNK, UNKNOWN

REACTIONS (2)
  - ABNORMAL BEHAVIOUR [None]
  - PARTIAL SEIZURES [None]
